FAERS Safety Report 8916348 (Version 1)
Quarter: 2012Q4

REPORT INFORMATION
  Report Type: 
  Country: FR (occurrence: FR)
  Receive Date: 20121120
  Receipt Date: 20121120
  Transmission Date: 20130627
  Serious: Yes (Hospitalization)
  Sender: FDA-Public Use
  Company Number: FR-ABBOTT-12P-056-1008768-00

PATIENT
  Age: 35 Year
  Sex: Female

DRUGS (4)
  1. HUMIRA [Suspect]
     Indication: ANKYLOSING SPONDYLITIS
     Route: 058
     Dates: start: 201101, end: 20120928
  2. PARACETAMOL/CODEINE [Concomitant]
     Indication: ANKYLOSING SPONDYLITIS
     Dosage: 300mg/25mg
     Route: 048
     Dates: end: 20121004
  3. LEVONORGESTREL W/ETHINYLESTRADIOL [Concomitant]
     Indication: PRODUCT USED FOR UNKNOWN INDICATION
     Route: 048
  4. TETRAZEPAM [Concomitant]
     Indication: ANKYLOSING SPONDYLITIS

REACTIONS (3)
  - Headache [Recovering/Resolving]
  - Paresis [Recovered/Resolved]
  - Hemianopia [Recovered/Resolved]
